FAERS Safety Report 24340294 (Version 1)
Quarter: 2024Q3

REPORT INFORMATION
  Report Type: Spontaneous
  Country: US (occurrence: US)
  Receive Date: 20240919
  Receipt Date: 20240919
  Transmission Date: 20241017
  Serious: Yes (Hospitalization, Other)
  Sender: SPECGX
  Company Number: US-SPECGX-T202401899

PATIENT
  Age: 62 Year
  Sex: Female

DRUGS (9)
  1. METHADONE [Suspect]
     Active Substance: METHADONE HYDROCHLORIDE
     Indication: Product used for unknown indication
     Dosage: UNK
     Route: 065
  2. OXYCODONE [Suspect]
     Active Substance: OXYCODONE
     Indication: Product used for unknown indication
     Dosage: 15 MILLIGRAM, QID
     Route: 065
  3. VALPROATE [Suspect]
     Active Substance: VALPROIC ACID
     Indication: Product used for unknown indication
     Dosage: 500 MILLIGRAM, BID
     Route: 065
  4. DULOXETINE [Suspect]
     Active Substance: DULOXETINE
     Indication: Product used for unknown indication
     Dosage: 60 MILLIGRAM, QD
     Route: 065
  5. RISPERIDONE [Suspect]
     Active Substance: RISPERIDONE
     Indication: Product used for unknown indication
     Dosage: 2 MILLIGRAM, BID
     Route: 065
  6. TRAZODONE [Suspect]
     Active Substance: TRAZODONE HYDROCHLORIDE
     Indication: Product used for unknown indication
     Dosage: 100 MILLIGRAM, QHS
     Route: 065
  7. METOPROLOL TARTRATE [Suspect]
     Active Substance: METOPROLOL TARTRATE
     Indication: Product used for unknown indication
     Dosage: 25 MILLIGRAM, QD
     Route: 065
  8. NALOXONE [Suspect]
     Active Substance: NALOXONE
     Indication: Accidental overdose
     Dosage: 4 MILLIGRAM
     Route: 045
  9. NALOXONE [Suspect]
     Active Substance: NALOXONE
     Dosage: 0.4 MILLIGRAM (THREE DOSES)
     Route: 042

REACTIONS (16)
  - Left ventricular hypertrophy [Unknown]
  - Blood creatinine increased [Recovering/Resolving]
  - White blood cell count increased [Unknown]
  - Blood urea increased [Unknown]
  - Electrocardiogram repolarisation abnormality [Unknown]
  - Interstitial lung disease [Recovering/Resolving]
  - Respiratory acidosis [Unknown]
  - Sinus tachycardia [Unknown]
  - Mental status changes [Unknown]
  - Accidental overdose [Unknown]
  - Pulmonary oedema [Recovering/Resolving]
  - Unresponsive to stimuli [Unknown]
  - Somnolence [Unknown]
  - Miosis [Unknown]
  - Dyspnoea [Unknown]
  - Substance use [Unknown]
